FAERS Safety Report 7099346-0 (Version None)
Quarter: 2010Q4

REPORT INFORMATION
  Report Type: 
  Country: None (occurrence: None)
  Receive Date: 20101112
  Receipt Date: 20101108
  Transmission Date: 20110411
  Serious: Yes (Hospitalization)
  Sender: FDA-Public Use
  Company Number: US-PFIZER INC-2010143115

PATIENT
  Sex: Male
  Weight: 71.202 kg

DRUGS (1)
  1. SUTENT [Suspect]
     Indication: ADENOCARCINOMA
     Dosage: 37.5 MG, DAILY
     Route: 048
     Dates: start: 20060317

REACTIONS (2)
  - ARRHYTHMIA [None]
  - CHEST PAIN [None]
